FAERS Safety Report 24752454 (Version 2)
Quarter: 2025Q1

REPORT INFORMATION
  Report Type: Spontaneous
  Country: US (occurrence: US)
  Receive Date: 20241219
  Receipt Date: 20250225
  Transmission Date: 20250408
  Serious: Yes (Death, Other)
  Sender: AMGEN
  Company Number: US-AMGEN-USASP2024244837

PATIENT

DRUGS (3)
  1. CARFILZOMIB [Suspect]
     Active Substance: CARFILZOMIB
     Indication: Plasma cell myeloma refractory
     Route: 040
  2. SELINEXOR [Suspect]
     Active Substance: SELINEXOR
     Indication: Plasma cell myeloma refractory
     Route: 048
  3. DEXAMETHASONE [Suspect]
     Active Substance: DEXAMETHASONE
     Indication: Plasma cell myeloma refractory
     Route: 048

REACTIONS (17)
  - Plasma cell myeloma refractory [Fatal]
  - Thrombocytopenia [Unknown]
  - Infection [Unknown]
  - Fatigue [Unknown]
  - Anaemia [Unknown]
  - Neutropenia [Unknown]
  - Leukopenia [Unknown]
  - Lymphopenia [Unknown]
  - Lower gastrointestinal haemorrhage [Unknown]
  - Upper respiratory tract infection [Unknown]
  - Plasma cell myeloma [Unknown]
  - Therapy non-responder [Unknown]
  - Dyspnoea [Unknown]
  - Nausea [Unknown]
  - Gastrointestinal disorder [Unknown]
  - Hepatic enzyme increased [Unknown]
  - Pancreatic enzymes increased [Unknown]
